FAERS Safety Report 15451934 (Version 1)
Quarter: 2018Q4

REPORT INFORMATION
  Report Type: Spontaneous
  Country: CZ (occurrence: CZ)
  Receive Date: 20181001
  Receipt Date: 20181001
  Transmission Date: 20190204
  Serious: Yes (Death, Life-Threatening, Hospitalization, Other)
  Sender: FDA-Public Use
  Company Number: CZ-JUBILANT CADISTA PHARMACEUTICALS-2018JUB00391

PATIENT
  Age: 25 Year
  Sex: Male

DRUGS (2)
  1. ESCITALOPRAM [Suspect]
     Active Substance: ESCITALOPRAM OXALATE
     Indication: DEPRESSION
     Dosage: 250 MG, ONCE
     Route: 048
  2. YEW LEAVES [Suspect]
     Active Substance: HERBALS\HOMEOPATHICS\TAXUS BACCATA FRUIT
     Dosage: 50 G, ONCE
     Route: 048

REACTIONS (9)
  - Intentional overdose [Recovered/Resolved]
  - Completed suicide [Fatal]
  - Electrocardiogram QRS complex prolonged [Recovered/Resolved]
  - Distributive shock [Recovering/Resolving]
  - Syncope [Unknown]
  - Ventricular fibrillation [Recovered/Resolved]
  - Nausea [Unknown]
  - Brain death [Fatal]
  - Serotonin syndrome [Recovering/Resolving]
